FAERS Safety Report 12444444 (Version 1)
Quarter: 2016Q2

REPORT INFORMATION
  Report Type: Spontaneous
  Country: US (occurrence: US)
  Receive Date: 20160607
  Receipt Date: 20160607
  Transmission Date: 20160815
  Serious: No
  Sender: FDA-Public Use
  Company Number: US-PERRIGO-15US006650

PATIENT
  Age: 68 Year
  Sex: Male
  Weight: 58.96 kg

DRUGS (1)
  1. MINOXIDIL AEROSOL 5% 294 [Suspect]
     Active Substance: MINOXIDIL
     Indication: ALOPECIA
     Dosage: HALF CAPFUL, BID
     Route: 061
     Dates: start: 201504, end: 20150619

REACTIONS (2)
  - Application site pruritus [Recovering/Resolving]
  - Drug ineffective [Unknown]

NARRATIVE: CASE EVENT DATE: 201504
